FAERS Safety Report 13853282 (Version 1)
Quarter: 2017Q3

REPORT INFORMATION
  Report Type: Spontaneous
  Country: US (occurrence: US)
  Receive Date: 20170809
  Receipt Date: 20170809
  Transmission Date: 20171127
  Serious: No
  Sender: FDA-Public Use
  Company Number: None

PATIENT
  Age: 66 Year
  Sex: Female
  Weight: 60.75 kg

DRUGS (20)
  1. PROLIA [Suspect]
     Active Substance: DENOSUMAB
     Indication: OSTEOPOROSIS
     Dosage: OTHER FREQUENCY:EVERY 6 MONTHS;?
     Route: 058
     Dates: start: 20170420, end: 20170422
  2. ELIQUIS [Concomitant]
     Active Substance: APIXABAN
  3. AMBIEN [Concomitant]
     Active Substance: ZOLPIDEM TARTRATE
  4. PHENERGAN [Concomitant]
     Active Substance: PROMETHAZINE HYDROCHLORIDE
  5. TYLENOL [Concomitant]
     Active Substance: ACETAMINOPHEN
  6. L-THEANINE [Concomitant]
     Active Substance: DIETARY SUPPLEMENT
  7. PREDNISONE. [Concomitant]
     Active Substance: PREDNISONE
  8. SOMA [Concomitant]
     Active Substance: CARISOPRODOL
  9. IRON [Concomitant]
     Active Substance: IRON
  10. LACTAID [Concomitant]
     Active Substance: LACTASE
  11. NEXIUM [Concomitant]
     Active Substance: ESOMEPRAZOLE MAGNESIUM
  12. DULERA [Concomitant]
     Active Substance: FORMOTEROL FUMARATE DIHYDRATE\MOMETASONE FUROATE
  13. VALACYCLOVIR [Concomitant]
     Active Substance: VALACYCLOVIR HYDROCHLORIDE
  14. VITAMIN D3 [Concomitant]
     Active Substance: CHOLECALCIFEROL
  15. ZOLOFT [Concomitant]
     Active Substance: SERTRALINE HYDROCHLORIDE
  16. ALBUTEROL. [Concomitant]
     Active Substance: ALBUTEROL
  17. CALCIUM [Concomitant]
     Active Substance: CALCIUM
  18. DILTIAZEM. [Concomitant]
     Active Substance: DILTIAZEM
  19. ATORVASTATIN [Concomitant]
     Active Substance: ATORVASTATIN
  20. ATIVAN [Concomitant]
     Active Substance: LORAZEPAM

REACTIONS (3)
  - Joint stiffness [None]
  - Pain in extremity [None]
  - Musculoskeletal stiffness [None]

NARRATIVE: CASE EVENT DATE: 20170420
